FAERS Safety Report 9410362 (Version 1)
Quarter: 2013Q3

REPORT INFORMATION
  Report Type: Spontaneous
  Country: US (occurrence: US)
  Receive Date: 20130719
  Receipt Date: 20130719
  Transmission Date: 20140515
  Serious: Yes (Other)
  Sender: FDA-Public Use
  Company Number: US-ROXANE LABORATORIES, INC.-2013-RO-01183RO

PATIENT
  Age: 52 Year
  Sex: Female

DRUGS (9)
  1. FLUCONAZOLE [Suspect]
     Indication: DECREASED IMMUNE RESPONSIVENESS
  2. FLUCONAZOLE [Suspect]
     Indication: HYPOTENSION
  3. PHENYTOIN [Suspect]
     Indication: STATUS EPILEPTICUS
     Route: 042
  4. VANCOMYCIN [Suspect]
     Indication: DECREASED IMMUNE RESPONSIVENESS
  5. VANCOMYCIN [Suspect]
     Indication: HYPOTENSION
  6. MEROPENEM [Suspect]
     Indication: DECREASED IMMUNE RESPONSIVENESS
  7. MEROPENEM [Suspect]
     Indication: HYPOTENSION
  8. TACROLIMUS [Concomitant]
     Indication: LIVER TRANSPLANT REJECTION
  9. FOSPHENYTOIN [Concomitant]
     Indication: STATUS EPILEPTICUS
     Route: 042

REACTIONS (4)
  - Electrocardiogram QRS complex prolonged [Recovered/Resolved]
  - Electrocardiogram QT prolonged [Recovered/Resolved]
  - Tachycardia [Recovered/Resolved]
  - Toxicity to various agents [Recovered/Resolved]
